FAERS Safety Report 6021408-7 (Version None)
Quarter: 2008Q4

REPORT INFORMATION
  Report Type: 
  Country: None (occurrence: None)
  Receive Date: 20081229
  Receipt Date: 20081219
  Transmission Date: 20090506
  Serious: Yes (Life-Threatening)
  Sender: FDA-Public Use
  Company Number: B0551717A

PATIENT
  Age: 38 Year
  Sex: Female

DRUGS (6)
  1. TAGAMET [Suspect]
     Indication: PREMEDICATION
     Route: 048
     Dates: start: 20081103
  2. PROPOFOL [Suspect]
     Indication: INDUCTION OF ANAESTHESIA
     Route: 042
     Dates: start: 20081103
  3. MIDAZOLAM HCL [Suspect]
     Indication: INDUCTION OF ANAESTHESIA
     Route: 042
     Dates: start: 20081103
  4. SUFENTA PRESERVATIVE FREE [Suspect]
     Indication: INDUCTION OF ANAESTHESIA
     Route: 042
     Dates: start: 20081103
  5. CELOCURINE [Suspect]
     Indication: ENDOTRACHEAL INTUBATION
     Route: 042
     Dates: start: 20081103
  6. ADRENALINE [Suspect]
     Indication: HYPOTENSION
     Dosage: 1MGH UNKNOWN
     Route: 042
     Dates: start: 20081103

REACTIONS (6)
  - DISORIENTATION [None]
  - HAEMODYNAMIC INSTABILITY [None]
  - HYPOTENSION [None]
  - RASH GENERALISED [None]
  - REGURGITATION [None]
  - SINUS TACHYCARDIA [None]
